FAERS Safety Report 12878914 (Version 3)
Quarter: 2016Q4

REPORT INFORMATION
  Report Type: Not Available
  Country: GB (occurrence: GB)
  Receive Date: 20161024
  Receipt Date: 20161209
  Transmission Date: 20170207
  Serious: Yes (Other)
  Sender: FDA-Public Use
  Company Number: GB-MUNDIPHARMA DS AND PHARMACOVIGILANCE-GBR-2016-0041186

PATIENT
  Age: 17 Year
  Sex: Male
  Weight: 66.5 kg

DRUGS (11)
  1. 1ALPHA,25-DIHYDROXYCHOLECALCIFER [Concomitant]
     Indication: PRODUCT USED FOR UNKNOWN INDICATION
  2. ROCURONIUM [Suspect]
     Active Substance: ROCURONIUM BROMIDE
     Indication: ANAESTHESIA
     Dosage: 20 MG, UNK
     Route: 042
     Dates: start: 20160926, end: 20160926
  3. PARACETAMOL [Suspect]
     Active Substance: ACETAMINOPHEN
     Indication: ANALGESIC THERAPY
     Dosage: 1 G, QID
     Route: 042
     Dates: start: 20160926, end: 20161003
  4. PROPOFOL. [Suspect]
     Active Substance: PROPOFOL
     Indication: ANAESTHESIA
     Dosage: 200 MG, DAILY
     Route: 042
     Dates: start: 20160926, end: 20160926
  5. LOSARTAN. [Concomitant]
     Active Substance: LOSARTAN
     Indication: PRODUCT USED FOR UNKNOWN INDICATION
  6. CODEINE [Suspect]
     Active Substance: CODEINE
     Indication: ANALGESIC THERAPY
     Dosage: 30 MG, DAILY
     Route: 048
     Dates: start: 20160926, end: 20161005
  7. DEXAMETHASONE. [Suspect]
     Active Substance: DEXAMETHASONE
     Indication: ANAESTHESIA
     Dosage: 6.6 MG, DAILY
     Route: 042
     Dates: start: 20160926, end: 20160926
  8. EPHEDRINE. [Suspect]
     Active Substance: EPHEDRINE
     Indication: PRODUCT USED FOR UNKNOWN INDICATION
     Dosage: 6 MG, UNK
     Route: 042
     Dates: start: 20160926, end: 20160926
  9. REMIFENTANIL [Suspect]
     Active Substance: REMIFENTANIL
     Indication: ANAESTHESIA
     Dosage: 8.6 MG, UNK
     Route: 042
     Dates: start: 20160926, end: 20160926
  10. HYDROCHLORTHIAZID [Concomitant]
     Active Substance: HYDROCHLOROTHIAZIDE
     Indication: PRODUCT USED FOR UNKNOWN INDICATION
  11. MORPHINE SULFATE. [Suspect]
     Active Substance: MORPHINE SULFATE
     Indication: ANALGESIC THERAPY
     Dosage: 6.5 MG, DAILY
     Route: 042
     Dates: start: 20160926, end: 20160926

REACTIONS (1)
  - Liver function test abnormal [Not Recovered/Not Resolved]

NARRATIVE: CASE EVENT DATE: 20161003
